FAERS Safety Report 13504129 (Version 3)
Quarter: 2017Q3

REPORT INFORMATION
  Report Type: Spontaneous
  Country: CH (occurrence: CH)
  Receive Date: 20170502
  Receipt Date: 20170827
  Transmission Date: 20171127
  Serious: Yes (Other)
  Sender: FDA-Public Use
  Company Number: PHHY2017CH062869

PATIENT
  Sex: Male

DRUGS (6)
  1. ENTRESTO [Suspect]
     Active Substance: SACUBITRIL\VALSARTAN
     Indication: CARDIAC FAILURE
     Dosage: 50 MG, BID
     Route: 048
     Dates: start: 20160922
  2. ENTRESTO [Suspect]
     Active Substance: SACUBITRIL\VALSARTAN
     Dosage: 150 MG QD (50MG IN THE MORNING AND 100MG IN THE EVENING)
     Route: 048
     Dates: start: 20161005, end: 20161030
  3. SIFROL [Concomitant]
     Active Substance: PRAMIPEXOLE
     Indication: RESTLESS LEGS SYNDROME
     Dosage: 0.125 MG, QD
     Route: 048
  4. TOREM [Concomitant]
     Active Substance: TORSEMIDE
     Indication: CARDIAC FAILURE
     Dosage: 5 MG, QD
     Route: 065
     Dates: start: 2013
  5. MARCOUMAR [Concomitant]
     Active Substance: PHENPROCOUMON
     Indication: PRODUCT USED FOR UNKNOWN INDICATION
     Dosage: UNK
     Route: 048
     Dates: start: 1994
  6. KEPPRA [Concomitant]
     Active Substance: LEVETIRACETAM
     Indication: EPILEPSY
     Dosage: 500 MG, QD
     Route: 048

REACTIONS (4)
  - Incorrect dose administered [Unknown]
  - Hypoglycaemia [Recovered/Resolved]
  - Drug intolerance [Unknown]
  - Dumping syndrome [Recovered/Resolved]

NARRATIVE: CASE EVENT DATE: 20161005
